FAERS Safety Report 4427238-1 (Version None)
Quarter: 2004Q3

REPORT INFORMATION
  Report Type: 
  Country: None (occurrence: None)
  Receive Date: 20040817
  Receipt Date: 20040428
  Transmission Date: 20050211
  Serious: Yes (Death, Life-Threatening, Hospitalization, Other)
  Sender: FDA-Public Use
  Company Number: 200411390EU

PATIENT
  Age: 66 Year
  Sex: Female

DRUGS (7)
  1. TAXOTERE [Suspect]
     Indication: BREAST CANCER
     Route: 042
     Dates: start: 20040227, end: 20040409
  2. ANTHRACYCLINES [Concomitant]
  3. CYCLOPHOSPHAMIDE [Concomitant]
  4. DESAMETHASONE [Concomitant]
  5. GRANISETRON [Concomitant]
  6. METOCLOPRAMIDE [Concomitant]
  7. RABEPRAZOLE SODIUM [Concomitant]

REACTIONS (4)
  - CARDIAC FAILURE [None]
  - GENERAL PHYSICAL HEALTH DETERIORATION [None]
  - PULMONARY FIBROSIS [None]
  - RESPIRATORY FAILURE [None]
